FAERS Safety Report 8104545-2 (Version None)
Quarter: 2012Q1

REPORT INFORMATION
  Report Type: 
  Country: None (occurrence: None)
  Receive Date: 20120201
  Receipt Date: 20120130
  Transmission Date: 20120608
  Serious: Yes (Other)
  Sender: FDA-Public Use
  Company Number: US-MERCK-1201USA03937

PATIENT

DRUGS (3)
  1. TORISEL [Concomitant]
     Route: 065
  2. DILANTIN [Suspect]
     Route: 065
  3. DECADRON [Suspect]
     Route: 048

REACTIONS (1)
  - RENAL CELL CARCINOMA [None]
